FAERS Safety Report 9340294 (Version 1)
Quarter: 2013Q2

REPORT INFORMATION
  Report Type: Spontaneous
  Country: US (occurrence: None)
  Receive Date: 20130610
  Receipt Date: 20130610
  Transmission Date: 20140414
  Serious: Yes (Death)
  Sender: FDA-Public Use
  Company Number: None

PATIENT
  Age: 90 Year
  Sex: Female

DRUGS (2)
  1. AVASTIN [Suspect]
     Indication: RETINAL VEIN OCCLUSION
     Dosage: 1 EVERY 6-8 WEEKS INTRAOCULAR
     Dates: start: 20080612, end: 20130225
  2. AVASTIN [Suspect]
     Indication: MACULAR OEDEMA
     Dosage: 1 EVERY 6-8 WEEKS INTRAOCULAR
     Dates: start: 20080612, end: 20130225

REACTIONS (1)
  - Death [None]
